FAERS Safety Report 5994066-5 (Version None)
Quarter: 2008Q4

REPORT INFORMATION
  Report Type: 
  Country: None (occurrence: None)
  Receive Date: 20081212
  Receipt Date: 20080831
  Transmission Date: 20090506
  Serious: No
  Sender: FDA-Public Use
  Company Number: US-ABBOTT-08P-163-0473366-00

PATIENT
  Sex: Female
  Weight: 104.42 kg

DRUGS (2)
  1. HUMIRA [Suspect]
     Indication: RHEUMATOID ARTHRITIS
     Dates: start: 20080820
  2. INSULIN [Concomitant]
     Indication: DIABETES MELLITUS
     Route: 058

REACTIONS (5)
  - ANXIETY [None]
  - ARTHRALGIA [None]
  - OEDEMA PERIPHERAL [None]
  - PYREXIA [None]
  - RHEUMATOID ARTHRITIS [None]
